FAERS Safety Report 5072783-1 (Version None)
Quarter: 2006Q3

REPORT INFORMATION
  Report Type: 
  Country: None (occurrence: None)
  Receive Date: 20060801
  Receipt Date: 20060724
  Transmission Date: 20061208
  Serious: Yes (Other)
  Sender: FDA-Public Use
  Company Number: DE200607001403

PATIENT
  Age: 26 Year
  Sex: Female

DRUGS (4)
  1. ZYPREXA [Suspect]
     Indication: OBSESSIVE THOUGHTS
     Dosage: 2.5 MG 4/D
     Dates: end: 20060629
  2. MIRTAZAPINE [Concomitant]
  3. FERRO-SANOL DUODENAL (FERROUS SULFATE) [Concomitant]
  4. FRESUBIN (CARBOHYDRATES NOS, FATTY ACIDS NOS, MINERALS NOS, PROTEINS N [Concomitant]

REACTIONS (2)
  - INTENTIONAL DRUG MISUSE [None]
  - LEUKOPENIA [None]
